FAERS Safety Report 7344563-5 (Version None)
Quarter: 2011Q1

REPORT INFORMATION
  Report Type: 
  Country: None (occurrence: None)
  Receive Date: 20110308
  Receipt Date: 20110308
  Transmission Date: 20110831
  Serious: Yes (Other)
  Sender: FDA-Public Use
  Company Number: None

PATIENT
  Age: 61 Year
  Sex: Female
  Weight: 113.3993 kg

DRUGS (1)
  1. FLUOXETINE [Suspect]
     Dosage: 20 MG DAILY OTHER
     Route: 050
     Dates: start: 20110303, end: 20110305

REACTIONS (1)
  - MOOD SWINGS [None]
